FAERS Safety Report 6133489-0 (Version None)
Quarter: 2009Q1

REPORT INFORMATION
  Report Type: 
  Country: None (occurrence: None)
  Receive Date: 20090324
  Receipt Date: 20090324
  Transmission Date: 20090719
  Serious: Yes (Other)
  Sender: FDA-Public Use
  Company Number: None

PATIENT
  Age: 57 Year
  Sex: Female
  Weight: 101 kg

DRUGS (7)
  1. SUCCINYLCHOLINE CHLORIDE [Suspect]
     Indication: ENDOTRACHEAL INTUBATION
     Dosage: 200MG -10ML- ONCE IV
     Route: 042
     Dates: start: 20090313, end: 20090313
  2. DICLOFENAC [Concomitant]
  3. NORVASC [Concomitant]
  4. LIDOCAINE [Concomitant]
  5. PROPOFOL [Concomitant]
  6. FENTANYL-25 [Concomitant]
  7. DILAUDID [Concomitant]

REACTIONS (1)
  - THERAPEUTIC RESPONSE DECREASED [None]
